FAERS Safety Report 10641917 (Version 1)
Quarter: 2014Q4

REPORT INFORMATION
  Report Type: Spontaneous
  Country: FR (occurrence: FR)
  Receive Date: 20141209
  Receipt Date: 20141209
  Transmission Date: 20150529
  Serious: Yes (Hospitalization, Other)
  Sender: FDA-Public Use
  Company Number: FR-ASTRAZENECA-2014SE93749

PATIENT
  Age: 1068 Month
  Sex: Male

DRUGS (22)
  1. CORTANCYL [Interacting]
     Active Substance: PREDNISONE
     Indication: POLYARTHRITIS
     Dosage: 40 MG DECREASING ALONG WEEKS, 30 MG AT 08:00
     Route: 048
     Dates: start: 201409, end: 20140924
  2. INEXIUM [Concomitant]
     Active Substance: ESOMEPRAZOLE
     Route: 048
  3. OXYNORMORO [Concomitant]
     Active Substance: OXYCODONE
     Route: 048
     Dates: start: 201409
  4. DOLIPRANE [Concomitant]
     Active Substance: ACETAMINOPHEN
     Route: 048
  5. STILNOX [Concomitant]
     Active Substance: ZOLPIDEM TARTRATE
  6. PREVISCAN [Suspect]
     Active Substance: FLUINDIONE
     Dosage: 5 MG ON EVEN DAYS AND 10 MG ON ODD DAYS
     Route: 048
  7. LASILIX [Concomitant]
     Active Substance: FUROSEMIDE
     Route: 048
     Dates: end: 20141015
  8. DUROGESIC [Concomitant]
     Active Substance: FENTANYL
     Dosage: 1 DF EVERY 3 DAYS, 25 MCG/HOUR
     Route: 062
     Dates: start: 201409, end: 20141004
  9. ADVIL [Concomitant]
     Active Substance: IBUPROFEN
     Dosage: DERMAL JELLY, AT MORNING AND NIGHT
  10. TAVANIC [Interacting]
     Active Substance: LEVOFLOXACIN
     Indication: SKIN BACTERIAL INFECTION
     Route: 048
     Dates: start: 20140929, end: 20140929
  11. TAVANIC [Interacting]
     Active Substance: LEVOFLOXACIN
     Indication: SKIN BACTERIAL INFECTION
     Route: 048
     Dates: start: 20140930, end: 20141004
  12. PREVISCAN [Suspect]
     Active Substance: FLUINDIONE
     Dosage: 20 MG 0.25 DF ON EVEN DAYS AND 0.5 DF ON ODD DAYS
     Route: 048
  13. CORDARONE [Concomitant]
     Active Substance: AMIODARONE HYDROCHLORIDE
     Route: 048
     Dates: end: 20141004
  14. SEROPLEX [Concomitant]
     Active Substance: ESCITALOPRAM OXALATE
     Route: 048
  15. AMOXICILLINE [Concomitant]
     Active Substance: AMOXICILLIN
     Indication: ERYSIPELAS
     Dosage: FOR 10 DAYS
  16. CRESTOR [Suspect]
     Active Substance: ROSUVASTATIN CALCIUM
     Indication: HYPERCHOLESTEROLAEMIA
     Route: 048
     Dates: end: 20141004
  17. HYDROCORTISONE (NON-AZ PRODUCT) [Interacting]
     Active Substance: HYDROCORTISONE
     Indication: POLYARTHRITIS
     Route: 042
     Dates: start: 20140924, end: 20141006
  18. BISOCE [Concomitant]
     Active Substance: BISOPROLOL
     Route: 048
  19. SOLU-MEDROL [Interacting]
     Active Substance: METHYLPREDNISOLONE SODIUM SUCCINATE
     Dosage: 40 MG/2 ML, 1 DF QD
     Route: 048
     Dates: start: 201408, end: 201409
  20. XATRAL SR [Concomitant]
     Active Substance: ALFUZOSIN
     Route: 048
  21. FORLAX [Concomitant]
     Active Substance: POLYETHYLENE GLYCOL 4000
     Route: 048
  22. ORBENINE [Concomitant]
     Active Substance: CLOXACILLIN SODIUM
     Indication: SKIN BACTERIAL INFECTION
     Dates: start: 20140929

REACTIONS (27)
  - Haemarthrosis [Recovered/Resolved]
  - Oedema [Unknown]
  - Joint dislocation [Unknown]
  - Cellulitis gangrenous [Unknown]
  - Rotator cuff syndrome [Recovered/Resolved]
  - Blood parathyroid hormone increased [Unknown]
  - International normalised ratio increased [Unknown]
  - Polyarthritis [Unknown]
  - Central obesity [Unknown]
  - Liver disorder [Unknown]
  - Malnutrition [Unknown]
  - Erysipelas [Unknown]
  - Oedema peripheral [Unknown]
  - Peripheral venous disease [Unknown]
  - Pleural effusion [Unknown]
  - Ecchymosis [Unknown]
  - Acute kidney injury [Unknown]
  - Iron deficiency [Unknown]
  - Arthralgia [Unknown]
  - Confusional state [Unknown]
  - Vitamin D decreased [Unknown]
  - Drug interaction [Unknown]
  - Transferrin decreased [Unknown]
  - Blood calcium decreased [Unknown]
  - Anaemia [Unknown]
  - Blood immunoglobulin A increased [Unknown]
  - Asthenia [Unknown]

NARRATIVE: CASE EVENT DATE: 201409
